FAERS Safety Report 4265774-1 (Version None)
Quarter: 2004Q1

REPORT INFORMATION
  Report Type: 
  Country: None (occurrence: None)
  Receive Date: 20040106
  Receipt Date: 20031223
  Transmission Date: 20041129
  Serious: Yes (Other)
  Sender: FDA-Public Use
  Company Number: US-JNJFOC-20030906561

PATIENT
  Age: 62 Year
  Sex: Female
  Weight: 58.9676 kg

DRUGS (4)
  1. REMICADE [Suspect]
     Indication: RHEUMATOID ARTHRITIS
     Dosage: RECEIVING INFLIXIMAB OVER A YEAR
  2. METHOTREXATE [Concomitant]
  3. LEVOXYL [Concomitant]
  4. NEXIUM [Concomitant]

REACTIONS (6)
  - AUTOIMMUNE THYROIDITIS [None]
  - BLOOD PRESSURE INCREASED [None]
  - GASTROOESOPHAGEAL REFLUX DISEASE [None]
  - HEART RATE INCREASED [None]
  - THROAT IRRITATION [None]
  - THYROID NEOPLASM [None]
